FAERS Safety Report 10245931 (Version 1)
Quarter: 2014Q2

REPORT INFORMATION
  Report Type: Spontaneous
  Country: US (occurrence: None)
  Receive Date: 20140616
  Receipt Date: 20140616
  Transmission Date: 20141212
  Serious: Yes (Other)
  Sender: FDA-Public Use
  Company Number: None

PATIENT
  Age: 63 Year
  Sex: Female
  Weight: 114.31 kg

DRUGS (6)
  1. CYCLOBENZAPRINE 10 MG. GENERIC FOR FLEXIRAL [Suspect]
     Indication: PAIN
     Dosage: 10 MG?2-3 TIMES A DAY ?BY MOUTH
     Route: 048
     Dates: start: 2009, end: 20140430
  2. CYCLOBENZAPRINE 10 MG. GENERIC FOR FLEXIRAL [Suspect]
     Indication: MUSCLE SPASMS
     Dosage: 10 MG?2-3 TIMES A DAY ?BY MOUTH
     Route: 048
     Dates: start: 2009, end: 20140430
  3. ENALAPRAL [Concomitant]
  4. ALEVE [Concomitant]
  5. ADVIL [Concomitant]
  6. TYLENOL [Concomitant]

REACTIONS (2)
  - Blindness unilateral [None]
  - Blindness transient [None]
